FAERS Safety Report 7048496-3 (Version None)
Quarter: 2010Q4

REPORT INFORMATION
  Report Type: 
  Country: None (occurrence: None)
  Receive Date: 20101015
  Receipt Date: 20101015
  Transmission Date: 20110411
  Serious: Yes (Disabling)
  Sender: FDA-Public Use
  Company Number: None

PATIENT
  Age: 38 Year
  Sex: Female
  Weight: 68.0396 kg

DRUGS (2)
  1. YASMIN [Suspect]
     Dates: start: 20060101
  2. ORTHO TRI-CYCLEN [Concomitant]

REACTIONS (2)
  - ARTHROPATHY [None]
  - BACK PAIN [None]
